FAERS Safety Report 12296511 (Version 2)
Quarter: 2016Q2

REPORT INFORMATION
  Report Type: Spontaneous
  Country: GB (occurrence: GB)
  Receive Date: 20160422
  Receipt Date: 20160512
  Transmission Date: 20160815
  Serious: Yes (Death)
  Sender: FDA-Public Use
  Company Number: GB-WATSON-2016-08318

PATIENT
  Age: 64 Year
  Sex: Male

DRUGS (4)
  1. ADOPORT [Suspect]
     Active Substance: TACROLIMUS
     Dosage: 0.5 MG, UNK
     Route: 048
  2. MYFENAX [Suspect]
     Active Substance: MYCOPHENOLATE MOFETIL
     Indication: PRODUCT USED FOR UNKNOWN INDICATION
     Dosage: 500 MG, UNK
     Route: 048
  3. ADOPORT [Suspect]
     Active Substance: TACROLIMUS
     Indication: PRODUCT USED FOR UNKNOWN INDICATION
     Dosage: 1 MG, UNK
     Route: 048
  4. PREDNISOLONE. [Suspect]
     Active Substance: PREDNISOLONE
     Indication: PRODUCT USED FOR UNKNOWN INDICATION
     Dosage: 5 MG, UNK
     Route: 048

REACTIONS (1)
  - Death [Fatal]
